FAERS Safety Report 8581904-5 (Version None)
Quarter: 2012Q3

REPORT INFORMATION
  Report Type: 
  Country: None (occurrence: None)
  Receive Date: 20120809
  Receipt Date: 20120730
  Transmission Date: 20120928
  Serious: Yes (Death, Life-Threatening, Hospitalization)
  Sender: FDA-Public Use
  Company Number: GB-CELGENEUS-167-C4047-12070808

PATIENT
  Sex: Female
  Weight: 71.8 kg

DRUGS (43)
  1. DEXAMETHASONE [Suspect]
     Indication: MULTIPLE MYELOMA
     Dosage: 40 MILLIGRAM
     Route: 065
     Dates: start: 20120516
  2. BETAHISTINE [Concomitant]
     Dosage: 48 MILLIGRAM
     Route: 065
     Dates: start: 20120525
  3. RED BLOOD CELLS [Concomitant]
     Route: 041
     Dates: start: 20120615, end: 20120615
  4. RED BLOOD CELLS [Concomitant]
     Route: 041
     Dates: start: 20120630, end: 20120630
  5. SODIUM CHLORIDE [Concomitant]
     Dosage: 4 DOSAGE FORMS
     Route: 065
     Dates: start: 20120712, end: 20120712
  6. SODIUM CHLORIDE [Concomitant]
     Dosage: 3 LITERS
     Route: 041
     Dates: start: 20120707, end: 20120708
  7. PALLIATIVE CARE [Concomitant]
     Indication: PALLIATIVE CARE
     Route: 065
  8. THALIDOMIDE [Suspect]
     Indication: MULTIPLE MYELOMA
     Route: 048
     Dates: start: 20120710, end: 20120715
  9. PENICILLIN G POTASSIUM [Concomitant]
     Indication: PNEUMONIA
     Dosage: 4.8 GRAM
     Route: 065
     Dates: start: 20120522
  10. ACTIMEL [Concomitant]
     Dosage: 1 DOSAGE FORMS
     Route: 065
     Dates: start: 20120603
  11. RED BLOOD CELLS [Concomitant]
     Dosage: 1 DOSAGE FORMS
     Route: 041
     Dates: start: 20120707, end: 20120707
  12. PIPERACILLIN AND TAZOBACTAM [Concomitant]
     Indication: PNEUMONIA
     Route: 065
  13. ALBUTEROL SULATE [Concomitant]
     Dosage: 10 MILLIGRAM
     Route: 065
     Dates: start: 20120712, end: 20120712
  14. SODIUM CHLORIDE [Concomitant]
     Dosage: 10 MILLILITER
     Route: 041
     Dates: start: 20120707, end: 20120707
  15. POTASSIUM CHLORIDE [Concomitant]
     Route: 041
     Dates: start: 20120701, end: 20120712
  16. LANSOPRAZOLE [Concomitant]
     Dosage: 30 MILLIGRAM
     Route: 065
     Dates: start: 20080101
  17. RED BLOOD CELLS [Concomitant]
     Route: 041
     Dates: start: 20120713, end: 20120713
  18. PROPRANALOC [Concomitant]
     Indication: ANXIETY
     Dosage: 20 MILLIGRAM
     Route: 065
     Dates: start: 20050701
  19. SODIUM CHLORIDE [Concomitant]
     Dosage: 2 LITERS
     Route: 041
     Dates: start: 20120709, end: 20120709
  20. DEXAMETHASONE [Suspect]
     Dosage: 40 MILLIGRAM
     Route: 065
     Dates: start: 20120711, end: 20120713
  21. PREGABALIN [Concomitant]
     Dosage: 150 MILLIGRAM
     Route: 065
     Dates: start: 20120525
  22. NURIEK HONEY / GLYCERIN [Concomitant]
     Dosage: 2 DOSAGE FORMS
     Route: 065
     Dates: start: 20120602
  23. CHLORPHENIRAMINE MALEATE [Concomitant]
     Route: 061
     Dates: start: 20120605
  24. RED BLOOD CELLS [Concomitant]
     Route: 041
     Dates: start: 20120606, end: 20120606
  25. METRONIDAZOLE [Concomitant]
     Dosage: 1500 MILLIGRAM
     Route: 041
     Dates: start: 20120708, end: 20120712
  26. DEXAMETHASONE [Suspect]
     Dosage: 40 MILLIGRAM
     Route: 065
     Dates: start: 20120613, end: 20120622
  27. PROPRANOLOL [Concomitant]
     Indication: ANXIETY
     Dosage: 20 MILLIGRAM
     Route: 065
     Dates: start: 20090701
  28. ZOMETA [Concomitant]
     Indication: PROPHYLAXIS
     Route: 065
     Dates: start: 20120516
  29. ALLOPURINOL [Concomitant]
     Dosage: 300 MILLIGRAM
     Route: 065
     Dates: start: 20120605
  30. SODIUM CHLORIDE [Concomitant]
     Dosage: 1 LITERS
     Route: 065
     Dates: start: 20120712, end: 20120712
  31. CODEINE PHOSPHATE [Concomitant]
     Route: 048
     Dates: start: 20120707
  32. CIPROFLOXACIN [Concomitant]
     Indication: INFECTION PROPHYLAXIS
     Dosage: 1500 MILLIGRAM
     Route: 065
     Dates: start: 20120628
  33. METATONE [Concomitant]
     Dosage: 1 DOSAGE FORMS
     Route: 065
     Dates: start: 20120603
  34. RED BLOOD CELLS [Concomitant]
     Dosage: 1 DOSAGE FORMS
     Route: 041
     Dates: start: 20120706, end: 20120707
  35. PLATELETS [Concomitant]
     Route: 065
     Dates: start: 20120705, end: 20120705
  36. TEICOPLANIN [Concomitant]
     Dosage: 800 MILLIGRAM
     Route: 041
     Dates: start: 20120710, end: 20120716
  37. PIPERACILLIN AND TAZOBACTAM [Concomitant]
     Dosage: 18 MILLIGRAM
     Route: 041
     Dates: start: 20120709, end: 20120716
  38. SODIUM CHLORIDE [Concomitant]
     Dosage: 1 LITERS
     Route: 065
     Dates: start: 20120711, end: 20120711
  39. DEXAMETHASONE [Suspect]
     Dosage: 40 MILLIGRAM
     Route: 065
     Dates: end: 20120709
  40. ZOMETA [Concomitant]
     Route: 041
     Dates: start: 20120707, end: 20120707
  41. FLUTICASONE PROPIONATE [Concomitant]
     Route: 065
     Dates: start: 20120622
  42. RED BLOOD CELLS [Concomitant]
     Route: 041
     Dates: start: 20120629, end: 20120629
  43. SODIUM CHLORIDE [Concomitant]
     Route: 041
     Dates: start: 20120709, end: 20120712

REACTIONS (5)
  - HYPERCALCAEMIA [None]
  - GENERAL PHYSICAL HEALTH DETERIORATION [None]
  - HYPERVISCOSITY SYNDROME [None]
  - PULMONARY OEDEMA [None]
  - CARDIAC FAILURE [None]
